FAERS Safety Report 8272028-5 (Version None)
Quarter: 2012Q2

REPORT INFORMATION
  Report Type: 
  Country: None (occurrence: None)
  Receive Date: 20120410
  Receipt Date: 20120404
  Transmission Date: 20120825
  Serious: Yes (Hospitalization)
  Sender: FDA-Public Use
  Company Number: GB-PURDUE-GBR-2012-0010216

PATIENT
  Age: 65 Year
  Sex: Female

DRUGS (9)
  1. ACETAMINOPHEN [Concomitant]
  2. PREGABALIN [Concomitant]
  3. METOLAZONE [Suspect]
     Indication: PRODUCT USED FOR UNKNOWN INDICATION
     Dosage: UNK
     Route: 048
     Dates: end: 20120308
  4. CITALOPRAM HYDROBROMIDE [Concomitant]
  5. OMEPRAZOLE [Concomitant]
  6. MORPHINE SULFATE [Suspect]
     Indication: PAIN
     Dosage: 5 MG, BID
     Route: 048
     Dates: start: 20120304, end: 20120308
  7. LOSARTAN POTASSIUM [Suspect]
     Indication: PRODUCT USED FOR UNKNOWN INDICATION
     Dosage: UNK
     Route: 048
     Dates: end: 20120308
  8. DICLOFENAC SODIUM [Suspect]
     Indication: PRODUCT USED FOR UNKNOWN INDICATION
     Dosage: 50 MG, TID
     Route: 048
     Dates: end: 20120308
  9. ALBUTEROL [Concomitant]

REACTIONS (5)
  - TOXICITY TO VARIOUS AGENTS [None]
  - RENAL FAILURE ACUTE [None]
  - DEHYDRATION [None]
  - CONFUSIONAL STATE [None]
  - SOMNOLENCE [None]
